FAERS Safety Report 9857734 (Version 2)
Quarter: 2014Q1

REPORT INFORMATION
  Report Type: Spontaneous
  Country: US (occurrence: US)
  Receive Date: 20140131
  Receipt Date: 20140211
  Transmission Date: 20141002
  Serious: No
  Sender: FDA-Public Use
  Company Number: US-BIOGENIDEC-2014BI009868

PATIENT
  Sex: Male

DRUGS (1)
  1. AVONEX [Suspect]
     Indication: MULTIPLE SCLEROSIS
     Route: 030
     Dates: start: 20061103

REACTIONS (4)
  - Gait disturbance [Recovered/Resolved]
  - Memory impairment [Unknown]
  - Balance disorder [Recovered/Resolved]
  - Fatigue [Not Recovered/Not Resolved]
